FAERS Safety Report 23468421 (Version 2)
Quarter: 2024Q1

REPORT INFORMATION
  Report Type: Report from Study
  Country: US (occurrence: US)
  Receive Date: 20240202
  Receipt Date: 20240226
  Transmission Date: 20240410
  Serious: Yes (Hospitalization, Other)
  Sender: FDA-Public Use
  Company Number: US-ABBVIE-5608892

PATIENT
  Sex: Female

DRUGS (1)
  1. HUMIRA [Suspect]
     Active Substance: ADALIMUMAB
     Indication: Rheumatoid arthritis
     Dosage: CITRATE FREE?FORM STRENGTH UNITS: 40 MILLIGRAM
     Route: 058
     Dates: start: 202312

REACTIONS (5)
  - Blindness transient [Unknown]
  - Arthritis bacterial [Unknown]
  - Urinary tract infection [Unknown]
  - Vision blurred [Unknown]
  - Drug ineffective [Unknown]
